FAERS Safety Report 23121976 (Version 2)
Quarter: 2023Q4

REPORT INFORMATION
  Report Type: Report from Study
  Country: FR (occurrence: FR)
  Receive Date: 20231030
  Receipt Date: 20231113
  Transmission Date: 20240110
  Serious: Yes (Other)
  Sender: FDA-Public Use
  Company Number: FR-Eisai-EC-2023-151336

PATIENT
  Age: 75 Year
  Sex: Male
  Weight: 64.0 kg

DRUGS (11)
  1. LENVATINIB [Suspect]
     Active Substance: LENVATINIB
     Indication: Uveal melanoma
     Route: 048
     Dates: start: 20230627, end: 20230918
  2. PEMBROLIZUMAB [Suspect]
     Active Substance: PEMBROLIZUMAB
     Indication: Uveal melanoma
     Dosage: UNKNOWN FREQUENCY
     Route: 042
     Dates: start: 20230627, end: 20230830
  3. SILODOSIN [Concomitant]
     Active Substance: SILODOSIN
  4. BETAMETHASONE [Concomitant]
     Active Substance: BETAMETHASONE\BETAMETHASONE DIPROPIONATE
     Dates: start: 20230824, end: 20230831
  5. LEVOTHYROXINE [Concomitant]
     Active Substance: LEVOTHYROXINE
     Dates: start: 20230915
  6. ASPIRIN [Concomitant]
     Active Substance: ASPIRIN
     Dates: start: 2007
  7. ATORVASTATIN [Concomitant]
     Active Substance: ATORVASTATIN
     Dates: start: 2007
  8. DUTASTERIDE [Concomitant]
     Active Substance: DUTASTERIDE
  9. IXPRIM [Concomitant]
     Active Substance: ACETAMINOPHEN\TRAMADOL HYDROCHLORIDE
     Dates: start: 2012
  10. GABAPENTIN [Concomitant]
     Active Substance: GABAPENTIN
     Dates: start: 2012
  11. RAMIPRIL [Concomitant]
     Active Substance: RAMIPRIL
     Dates: start: 2007

REACTIONS (1)
  - Lymphoma [Not Recovered/Not Resolved]

NARRATIVE: CASE EVENT DATE: 20231003
